FAERS Safety Report 20593812 (Version 1)
Quarter: 2022Q1

REPORT INFORMATION
  Report Type: Spontaneous
  Country: None (occurrence: US)
  Receive Date: 20220315
  Receipt Date: 20220315
  Transmission Date: 20220423
  Serious: No
  Sender: FDA-Public Use
  Company Number: US-Y-mAbs Therapeutics-2126777

PATIENT
  Age: 9 Year
  Sex: Male

DRUGS (9)
  1. DANYELZA [Suspect]
     Active Substance: NAXITAMAB-GQGK
     Indication: Neuroblastoma
     Route: 042
  2. KETAMINE HYDROCHLORIDE [Concomitant]
     Active Substance: KETAMINE HYDROCHLORIDE
  3. OXYCODONE. [Concomitant]
     Active Substance: OXYCODONE HYDROCHLORIDE
  4. NUBAIN [Concomitant]
     Active Substance: NALBUPHINE HYDROCHLORIDE
  5. SODIUM CHLORIDE [Concomitant]
     Active Substance: SODIUM CHLORIDE
  6. ALBUMIN (HUMAN) [Concomitant]
     Active Substance: ALBUMIN HUMAN
  7. COMPAZINE [Concomitant]
     Active Substance: PROCHLORPERAZINE MALEATE
  8. HYDROXYZINE [Concomitant]
     Active Substance: HYDROXYZINE HYDROCHLORIDE
  9. OXYGEN [Concomitant]
     Active Substance: OXYGEN

REACTIONS (3)
  - Pain [Unknown]
  - Hypotension [Unknown]
  - Nasal congestion [Unknown]
